FAERS Safety Report 16997451 (Version 1)
Quarter: 2019Q4

REPORT INFORMATION
  Report Type: Spontaneous
  Country: US (occurrence: US)
  Receive Date: 20191106
  Receipt Date: 20191106
  Transmission Date: 20200122
  Serious: Yes (Hospitalization, Other)
  Sender: FDA-Public Use
  Company Number: US-GW PHARMA-201910USGW4022

PATIENT

DRUGS (2)
  1. EPIDIOLEX [Suspect]
     Active Substance: CANNABIDIOL
     Indication: EPILEPSY
     Dosage: 110 MILLIGRAM, BID (1.1 ML TIMES 7)
     Route: 048
     Dates: start: 20191002, end: 201910
  2. EPIDIOLEX [Suspect]
     Active Substance: CANNABIDIOL
     Dosage: 210 MILLIGRAM, BID
     Route: 048
     Dates: start: 201910

REACTIONS (1)
  - Seizure [Unknown]

NARRATIVE: CASE EVENT DATE: 20191025
